FAERS Safety Report 17359335 (Version 1)
Quarter: 2020Q1

REPORT INFORMATION
  Report Type: Spontaneous
  Country: US (occurrence: US)
  Receive Date: 20200203
  Receipt Date: 20200203
  Transmission Date: 20200409
  Serious: No
  Sender: FDA-Public Use
  Company Number: NVSC2020US021652

PATIENT
  Age: 66 Year
  Sex: Male
  Weight: 76 kg

DRUGS (4)
  1. METHYLPREDNISOLONE. [Suspect]
     Active Substance: METHYLPREDNISOLONE
     Indication: DRUG REACTION WITH EOSINOPHILIA AND SYSTEMIC SYMPTOMS
     Dosage: 1 MG/KG, QD
     Route: 042
  2. METHYLPREDNISOLONE. [Suspect]
     Active Substance: METHYLPREDNISOLONE
     Dosage: 1.5 MG, QD (FOR 2 DAYS)
     Route: 042
  3. N-ACETYLCYSTEINE [Suspect]
     Active Substance: ACETYLCYSTEINE
     Indication: DRUG REACTION WITH EOSINOPHILIA AND SYSTEMIC SYMPTOMS
     Dosage: 150 MG/KG, Q12H (FOR 3 DAYS)
     Route: 065
  4. VITAMIN K [Suspect]
     Active Substance: PHYTONADIONE
     Indication: DRUG REACTION WITH EOSINOPHILIA AND SYSTEMIC SYMPTOMS
     Dosage: 5 MG, QD
     Route: 048

REACTIONS (1)
  - Drug ineffective [Not Recovered/Not Resolved]
